FAERS Safety Report 12290361 (Version 1)
Quarter: 2016Q2

REPORT INFORMATION
  Report Type: Spontaneous
  Country: US (occurrence: None)
  Receive Date: 20160420
  Receipt Date: 20160420
  Transmission Date: 20160815
  Serious: Yes (Hospitalization)
  Sender: FDA-Public Use
  Company Number: None

PATIENT
  Age: 61 Year
  Sex: Male
  Weight: 94.4 kg

DRUGS (1)
  1. DIMETHYL FUMARATE [Suspect]
     Active Substance: DIMETHYL FUMARATE
     Indication: MULTIPLE SCLEROSIS
     Dosage: MG BID PO
     Route: 048
     Dates: start: 20151027, end: 20151124

REACTIONS (4)
  - Dehydration [None]
  - Renal failure [None]
  - Diarrhoea [None]
  - Blood electrolytes abnormal [None]

NARRATIVE: CASE EVENT DATE: 20151124
